FAERS Safety Report 22302056 (Version 3)
Quarter: 2023Q2

REPORT INFORMATION
  Report Type: Report from Study
  Country: EG (occurrence: EG)
  Receive Date: 20230510
  Receipt Date: 20230522
  Transmission Date: 20230722
  Serious: Yes (Other)
  Sender: FDA-Public Use
  Company Number: EG-002147023-NVSC2023EG101728

PATIENT
  Age: 32 Year
  Sex: Female

DRUGS (6)
  1. HYRIMOZ [Suspect]
     Active Substance: ADALIMUMAB-ADAZ
     Indication: Rheumatoid arthritis
     Dosage: 40 MG, EVERY OTHER WEEKS
     Route: 058
     Dates: start: 20220716, end: 20221001
  2. METHOTREXATE [Suspect]
     Active Substance: METHOTREXATE
     Indication: Rheumatoid arthritis
     Dosage: UNK UNK, QW (1CM EVERY WEEK FOR A MONTH)
     Route: 030
     Dates: start: 20220716
  3. METHOTREXATE [Suspect]
     Active Substance: METHOTREXATE
     Dosage: UNK UNK, QW (0.5 CM EVERY WEEK FOR TWO MONTHS)
     Route: 030
  4. LEFLUNOMIDE [Concomitant]
     Active Substance: LEFLUNOMIDE
     Indication: Rheumatoid arthritis
     Dosage: 1 DOSAGE FORM, QD
     Route: 065
     Dates: start: 20221101
  5. LEFLUNOMIDE [Concomitant]
     Active Substance: LEFLUNOMIDE
     Dosage: 1 DOSAGE FORM, QD
     Route: 065
     Dates: end: 202304
  6. DAFLON [Concomitant]
     Indication: Haemorrhage
     Dosage: 2 DOSAGE FORM, QD (STARTED 10 DAYS AFTER BLEEDING)
     Route: 065
     Dates: start: 2022

REACTIONS (6)
  - Vaginal haemorrhage [Recovered/Resolved]
  - Hypertension [Recovered/Resolved]
  - Eye inflammation [Recovering/Resolving]
  - Rheumatoid arthritis [Not Recovered/Not Resolved]
  - Joint swelling [Not Recovered/Not Resolved]
  - Pain [Not Recovered/Not Resolved]

NARRATIVE: CASE EVENT DATE: 20220815
